FAERS Safety Report 5586827-1 (Version None)
Quarter: 2008Q1

REPORT INFORMATION
  Report Type: 
  Country: None (occurrence: None)
  Receive Date: 20080108
  Receipt Date: 20080108
  Transmission Date: 20080703
  Serious: Yes (Other)
  Sender: FDA-Public Use
  Company Number: None

PATIENT
  Age: 59 Year
  Sex: Male
  Weight: 90.7194 kg

DRUGS (2)
  1. ALENDRONATE SODIUM [Suspect]
     Indication: OSTEOPOROSIS
     Dosage: 70  1 PER WEEK PO
     Route: 048
  2. GABAPENTIN [Suspect]
     Indication: OSTEOPOROSIS
     Dosage: 600 MG   3 X DAILY  PO
     Route: 048

REACTIONS (3)
  - BONE PAIN [None]
  - BURNING SENSATION [None]
  - PAIN [None]
